FAERS Safety Report 14721420 (Version 1)
Quarter: 2018Q1

REPORT INFORMATION
  Report Type: Spontaneous
  Country: US (occurrence: US)
  Receive Date: 20180331
  Receipt Date: 20180331
  Transmission Date: 20180509
  Serious: Yes (Other)
  Sender: FDA-Public Use
  Company Number: None

PATIENT
  Age: 34 Year
  Sex: Female
  Weight: 79.38 kg

DRUGS (7)
  1. MAGNESIUM [Concomitant]
     Active Substance: MAGNESIUM
  2. MIRENA [Suspect]
     Active Substance: LEVONORGESTREL
     Dates: start: 20180307
  3. FENUGREEK [Concomitant]
     Active Substance: FENUGREEK SEED
  4. METHADONE [Concomitant]
     Active Substance: METHADONE HYDROCHLORIDE
  5. PRENATAL [Concomitant]
     Active Substance: VITAMINS
  6. BLESSED THISTLE [Concomitant]
  7. CALCIUM [Concomitant]
     Active Substance: CALCIUM

REACTIONS (1)
  - Suppressed lactation [None]

NARRATIVE: CASE EVENT DATE: 20180312
